FAERS Safety Report 9248823 (Version 1)
Quarter: 2013Q1

REPORT INFORMATION
  Report Type: Spontaneous
  Country: US (occurrence: None)
  Receive Date: 20130305
  Receipt Date: 20130305
  Transmission Date: 20140127
  Serious: Yes (Other)
  Sender: FDA-Public Use
  Company Number: 163-21880-12091718

PATIENT
  Age: 75 Year
  Sex: Male

DRUGS (9)
  1. REVLIMID [Suspect]
     Indication: PLASMA CELL MYELOMA
     Dosage: 10 MG, 21 IN 21 D, PO
     Dates: start: 20120815, end: 2012
  2. ALEVE (NAPROXEN SODIUM) [Concomitant]
  3. GABAPENTIN (GABAPENTIN) [Concomitant]
  4. GENTLELAX (OTHER LAXATIVES) [Concomitant]
  5. HYDROMORPHONE HCL (HYDROMORPHONE HYDROCHLORIDE) [Concomitant]
  6. MILK OF MAGNESIA (MAGNESIUM HYDROXIDE) [Concomitant]
  7. SENNA PLUS (SENNOSIDE A+B) [Concomitant]
  8. TOVIAZ (FESOTERODINE FUMARATE) [Concomitant]
  9. ZOLPIDEM TARTRATE (ZOLPIDEM TARTRATE) [Concomitant]

REACTIONS (1)
  - Neuropathy peripheral [None]
